FAERS Safety Report 7797097-8 (Version None)
Quarter: 2011Q4

REPORT INFORMATION
  Report Type: 
  Country: None (occurrence: None)
  Receive Date: 20111003
  Receipt Date: 20110922
  Transmission Date: 20120403
  Serious: Yes (Death)
  Sender: FDA-Public Use
  Company Number: 2011MA014449

PATIENT
  Age: 86 Year
  Sex: Female

DRUGS (4)
  1. AMLODIPINE [Concomitant]
  2. DIGITOXIN TAB [Concomitant]
  3. COZAAR [Concomitant]
  4. METFORMIN HCL [Suspect]
     Indication: TYPE 2 DIABETES MELLITUS
     Dosage: 500 MG; PO
     Route: 048

REACTIONS (6)
  - VOMITING [None]
  - DIARRHOEA [None]
  - LACTIC ACIDOSIS [None]
  - DRUG LEVEL INCREASED [None]
  - DEHYDRATION [None]
  - RENAL FAILURE ACUTE [None]
